FAERS Safety Report 11459169 (Version 1)
Quarter: 2015Q3

REPORT INFORMATION
  Report Type: Spontaneous
  Country: US (occurrence: US)
  Receive Date: 20150904
  Receipt Date: 20150904
  Transmission Date: 20151125
  Serious: Yes (Other)
  Sender: FDA-Public Use
  Company Number: US-TAKEDA-2014TUS005763

PATIENT

DRUGS (15)
  1. DIABETA                            /00145301/ [Concomitant]
  2. GLYNASE                            /00145301/ [Concomitant]
  3. METFORMIN [Concomitant]
     Active Substance: METFORMIN HYDROCHLORIDE
     Dosage: UNK
  4. GLUCOTROL [Concomitant]
     Active Substance: GLIPIZIDE
     Dosage: 5 MG, UNK
     Dates: start: 20040116
  5. IFEX [Concomitant]
     Active Substance: IFOSFAMIDE
  6. ARISTOLOCHIA FANGCHI [Concomitant]
  7. CYTOXAN [Concomitant]
     Active Substance: CYCLOPHOSPHAMIDE
  8. HUMALOG [Concomitant]
     Active Substance: INSULIN LISPRO
  9. TOLINASE [Concomitant]
     Active Substance: TOLAZAMIDE
  10. JANUMET [Concomitant]
     Active Substance: METFORMIN HYDROCHLORIDE\SITAGLIPTIN PHOSPHATE
     Indication: DIABETES MELLITUS
     Dosage: 50-1000 MG, UNK
     Dates: start: 20140227
  11. ACTOS [Suspect]
     Active Substance: PIOGLITAZONE HYDROCHLORIDE
     Indication: TYPE 2 DIABETES MELLITUS
     Dosage: 30 MG, UNK
     Route: 048
     Dates: start: 2000, end: 2004
  12. JANUVIA [Concomitant]
     Active Substance: SITAGLIPTIN PHOSPHATE
  13. FORTAMET [Concomitant]
     Active Substance: METFORMIN HYDROCHLORIDE
  14. MICRONASE [Concomitant]
     Active Substance: GLYBURIDE
  15. EMPIRIN COMPOUND [Concomitant]

REACTIONS (2)
  - Bladder cancer [Unknown]
  - Asthenia [Unknown]

NARRATIVE: CASE EVENT DATE: 2011
